FAERS Safety Report 11911003 (Version 1)
Quarter: 2016Q1

REPORT INFORMATION
  Report Type: Spontaneous
  Country: FR (occurrence: FR)
  Receive Date: 20160112
  Receipt Date: 20160112
  Transmission Date: 20160526
  Serious: Yes (Other)
  Sender: FDA-Public Use
  Company Number: FR-BAXALTA-2016BLT000002

PATIENT
  Age: 83 Year
  Sex: Male

DRUGS (13)
  1. FEIBA [Suspect]
     Active Substance: ANTI-INHIBITOR COAGULANT COMPLEX
     Indication: FACTOR VIII DEFICIENCY
     Dosage: 5000 IU, 2X A DAY
     Route: 042
     Dates: start: 20151126, end: 20151205
  2. NOVOSEVEN [Suspect]
     Active Substance: COAGULATION FACTOR VIIA RECOMBINANT HUMAN
     Indication: PRODUCT USED FOR UNKNOWN INDICATION
     Dosage: 6 MG, 3X- AT 10:00, 12:00 AND 16:00
     Route: 042
     Dates: start: 20151205, end: 20151205
  3. EXACYL [Suspect]
     Active Substance: TRANEXAMIC ACID
     Indication: FACTOR VIII DEFICIENCY
     Dosage: 1 G, 4X A DAY
     Route: 042
     Dates: start: 20151126, end: 20151204
  4. BISOPROLOL HEMIFUMERATE [Concomitant]
     Indication: PRODUCT USED FOR UNKNOWN INDICATION
     Dosage: 1.25 MG, 1X A DAY
     Route: 048
  5. TAHOR [Concomitant]
     Active Substance: ATORVASTATIN CALCIUM
     Indication: PRODUCT USED FOR UNKNOWN INDICATION
     Dosage: 40 MG, 1X A DAY
     Route: 048
  6. FEIBA [Suspect]
     Active Substance: ANTI-INHIBITOR COAGULANT COMPLEX
     Indication: RECTAL HAEMORRHAGE
     Dosage: 5000 IU, EVERY 8 HOURS
     Route: 042
     Dates: start: 20151204
  7. NOVOSEVEN [Suspect]
     Active Substance: COAGULATION FACTOR VIIA RECOMBINANT HUMAN
     Dosage: UNK
  8. ENDOXAN [Concomitant]
     Active Substance: CYCLOPHOSPHAMIDE
     Indication: PRODUCT USED FOR UNKNOWN INDICATION
     Dosage: 50 MG, 2X A DAY
     Route: 042
     Dates: start: 20151204
  9. SINTROM [Concomitant]
     Active Substance: ACENOCOUMAROL
     Indication: PRODUCT USED FOR UNKNOWN INDICATION
     Dosage: UNK
     Route: 065
     Dates: end: 201511
  10. AUGMENTIN [Concomitant]
     Active Substance: AMOXICILLIN\CLAVULANATE POTASSIUM
     Indication: ANTIBIOTIC THERAPY
     Dosage: UNK
  11. INEXIUM [Concomitant]
     Active Substance: ESOMEPRAZOLE
     Indication: PRODUCT USED FOR UNKNOWN INDICATION
     Dosage: 40 MG, 1X A DAY
     Route: 042
     Dates: start: 20151127
  12. INIPOMP [Concomitant]
     Active Substance: PANTOPRAZOLE SODIUM
     Indication: PRODUCT USED FOR UNKNOWN INDICATION
     Dosage: UNK
     Dates: end: 201511
  13. PREDNISONE. [Concomitant]
     Active Substance: PREDNISONE
     Indication: PRODUCT USED FOR UNKNOWN INDICATION
     Dosage: 70 MG, 1X A DAY
     Route: 048
     Dates: start: 20151128

REACTIONS (4)
  - Rectal haemorrhage [Unknown]
  - Ischaemic stroke [Not Recovered/Not Resolved]
  - Disseminated intravascular coagulation [Unknown]
  - Urinary tract infection [Unknown]

NARRATIVE: CASE EVENT DATE: 20151128
